FAERS Safety Report 5259210-6 (Version None)
Quarter: 2007Q1

REPORT INFORMATION
  Report Type: 
  Country: None (occurrence: None)
  Receive Date: 20070308
  Receipt Date: 20070227
  Transmission Date: 20070707
  Serious: Yes (Other)
  Sender: FDA-Public Use
  Company Number: CA-PFIZER INC-2007007537

PATIENT
  Sex: Male

DRUGS (6)
  1. LIPITOR [Suspect]
     Indication: BLOOD CHOLESTEROL INCREASED
     Route: 048
  2. ANTIHYPERTENSIVES [Concomitant]
  3. APO-FERROUS SULFATE [Concomitant]
     Route: 048
     Dates: start: 20060101
  4. ANTIHYPERTENSIVES [Concomitant]
  5. DIPYRIDAMOLE [Concomitant]
  6. ACETYLSALICYLIC ACID SRT [Concomitant]

REACTIONS (6)
  - ANORGASMIA [None]
  - EJACULATION FAILURE [None]
  - MUSCULAR WEAKNESS [None]
  - MYALGIA [None]
  - SEMEN VOLUME ABNORMAL [None]
  - TRANSIENT ISCHAEMIC ATTACK [None]
